FAERS Safety Report 24872683 (Version 1)
Quarter: 2025Q1

REPORT INFORMATION
  Report Type: Spontaneous
  Country: US (occurrence: US)
  Receive Date: 20250122
  Receipt Date: 20250122
  Transmission Date: 20250409
  Serious: Yes (Other)
  Sender: SUNOVION
  Company Number: US-SMPA-2025SPA000205

PATIENT

DRUGS (1)
  1. APTIOM [Suspect]
     Active Substance: ESLICARBAZEPINE ACETATE
     Indication: Seizure
     Route: 048

REACTIONS (2)
  - Seizure [Unknown]
  - Therapy interrupted [Unknown]
